FAERS Safety Report 5057491-5 (Version None)
Quarter: 2006Q3

REPORT INFORMATION
  Report Type: 
  Country: None (occurrence: None)
  Receive Date: 20060721
  Receipt Date: 20051025
  Transmission Date: 20061208
  Serious: No
  Sender: FDA-Public Use
  Company Number: US-GLAXOSMITHKLINE-A0579587A

PATIENT
  Age: 56 Year
  Sex: Male

DRUGS (3)
  1. AVANDIA [Suspect]
     Dosage: 8MG TWICE PER DAY
     Route: 048
     Dates: start: 20000501, end: 20010101
  2. PREVACID [Concomitant]
  3. HEART MEDICATION [Concomitant]

REACTIONS (1)
  - JOINT SWELLING [None]
